FAERS Safety Report 11619011 (Version 21)
Quarter: 2020Q3

REPORT INFORMATION
  Report Type: Report from Study
  Country: CA (occurrence: CA)
  Receive Date: 20151012
  Receipt Date: 20200923
  Transmission Date: 20201102
  Serious: Yes (Hospitalization, Other)
  Sender: FDA-Public Use
  Company Number: PHHY2015CA121542

PATIENT
  Age: 61 Year
  Sex: Male

DRUGS (3)
  1. SANDOSTATIN LAR DEPOT [Suspect]
     Active Substance: OCTREOTIDE ACETATE
     Dosage: 60 MG, QMO
     Route: 030
  2. SANDOSTATIN LAR DEPOT [Suspect]
     Active Substance: OCTREOTIDE ACETATE
     Indication: NEUROENDOCRINE TUMOUR
     Dosage: 30 MG, QMO (ONCE A MONTH)
     Route: 030
     Dates: start: 20150810
  3. SANDOSTATIN LAR DEPOT [Suspect]
     Active Substance: OCTREOTIDE ACETATE
     Dosage: 40 MG, QMO (ONCE A MONTH)
     Route: 030

REACTIONS (21)
  - Second primary malignancy [Unknown]
  - Neuroendocrine tumour [Unknown]
  - Emotional distress [Unknown]
  - Malignant neoplasm progression [Unknown]
  - Feeling abnormal [Unknown]
  - Back pain [Unknown]
  - Pollakiuria [Unknown]
  - Heart rate increased [Unknown]
  - Fall [Unknown]
  - Musculoskeletal pain [Recovered/Resolved]
  - Blood pressure systolic increased [Unknown]
  - Dysarthria [Unknown]
  - Pain in extremity [Unknown]
  - Depression [Unknown]
  - Pain [Unknown]
  - Injection site pain [Recovered/Resolved]
  - Cerebrovascular accident [Unknown]
  - Discomfort [Unknown]
  - Eating disorder [Unknown]
  - Bone cancer [Unknown]
  - Balance disorder [Unknown]

NARRATIVE: CASE EVENT DATE: 20151004
